FAERS Safety Report 17833652 (Version 1)
Quarter: 2020Q2

REPORT INFORMATION
  Report Type: Spontaneous
  Country: US (occurrence: US)
  Receive Date: 20200527
  Receipt Date: 20200527
  Transmission Date: 20200714
  Serious: Yes (Hospitalization, Other)
  Sender: FDA-Public Use
  Company Number: None

PATIENT
  Age: 80 Year
  Sex: Male
  Weight: 92.5 kg

DRUGS (13)
  1. PLAQUINIL [Concomitant]
     Dates: start: 20200525, end: 20200525
  2. PREDNISONE. [Concomitant]
     Active Substance: PREDNISONE
     Dates: start: 20200525
  3. REMDESIVIR. [Suspect]
     Active Substance: REMDESIVIR
     Indication: COVID-19 PNEUMONIA
     Dosage: ?          OTHER FREQUENCY:ONCE;?
     Route: 042
     Dates: start: 20200526, end: 20200527
  4. DOXYCYCLINE. [Concomitant]
     Active Substance: DOXYCYCLINE
     Dates: start: 20200523, end: 20200526
  5. METOPROLOL XL [Concomitant]
     Active Substance: METOPROLOL SUCCINATE
  6. CEFTIRAXONE [Concomitant]
     Dates: start: 20200522
  7. PROTONIX [Concomitant]
     Active Substance: PANTOPRAZOLE SODIUM
  8. ACTEMRA [Concomitant]
     Active Substance: TOCILIZUMAB
     Dates: start: 20200525, end: 20200525
  9. VITAMIN C [Concomitant]
     Active Substance: ASCORBIC ACID
     Dates: start: 20200525
  10. TORSEMIDE. [Concomitant]
     Active Substance: TORSEMIDE
  11. CARDIZEM [Concomitant]
     Active Substance: DILTIAZEM HYDROCHLORIDE
  12. LIPITOR [Concomitant]
     Active Substance: ATORVASTATIN CALCIUM
  13. VANCOMYCIN [Concomitant]
     Active Substance: VANCOMYCIN
     Dates: start: 20200527

REACTIONS (5)
  - Aspartate aminotransferase increased [None]
  - International normalised ratio increased [None]
  - Alanine aminotransferase increased [None]
  - Prothrombin time prolonged [None]
  - Liver disorder [None]

NARRATIVE: CASE EVENT DATE: 20200527
